FAERS Safety Report 6182541-2 (Version None)
Quarter: 2009Q2

REPORT INFORMATION
  Report Type: 
  Country: None (occurrence: None)
  Receive Date: 20090507
  Receipt Date: 20090430
  Transmission Date: 20091009
  Serious: Yes (Death, Other)
  Sender: FDA-Public Use
  Company Number: CH-BAYER-200919753GPV

PATIENT
  Age: 73 Year
  Sex: Male
  Weight: 91 kg

DRUGS (8)
  1. ASPIRIN [Suspect]
     Indication: DRUG USE FOR UNKNOWN INDICATION
     Route: 048
     Dates: start: 20090318, end: 20090327
  2. ACTIVASE [Suspect]
     Indication: CEREBRAL INFARCTION
     Route: 042
     Dates: start: 20090325, end: 20090325
  3. PLAVIX [Suspect]
     Indication: DRUG USE FOR UNKNOWN INDICATION
     Route: 048
     Dates: start: 20090318
  4. ENOXAPARIN SODIUM [Suspect]
     Indication: DRUG USE FOR UNKNOWN INDICATION
     Route: 058
     Dates: start: 20090323
  5. BEBULIN VH IMMUNO [Suspect]
     Indication: DRUG USE FOR UNKNOWN INDICATION
     Route: 042
     Dates: start: 20090325, end: 20090325
  6. HAEMOCOMPLETTAN [Suspect]
     Indication: DRUG USE FOR UNKNOWN INDICATION
     Route: 042
     Dates: start: 20090325, end: 20090325
  7. BISOPROLOL FUMARATE [Concomitant]
     Indication: DRUG USE FOR UNKNOWN INDICATION
     Route: 048
  8. NITRODERM [Concomitant]
     Indication: DRUG USE FOR UNKNOWN INDICATION
     Route: 062

REACTIONS (6)
  - BRAIN HERNIATION [None]
  - CEREBRAL INFARCTION [None]
  - EPISTAXIS [None]
  - HAEMATEMESIS [None]
  - HAEMATOMA [None]
  - MYOCARDIAL INFARCTION [None]
